FAERS Safety Report 6875600-X (Version None)
Quarter: 2010Q3

REPORT INFORMATION
  Report Type: 
  Country: None (occurrence: None)
  Receive Date: 20100727
  Receipt Date: 20100721
  Transmission Date: 20110219
  Serious: Yes (Hospitalization)
  Sender: FDA-Public Use
  Company Number: CN-JNJFOC-20100706653

PATIENT
  Sex: Male
  Weight: 5.45 kg

DRUGS (2)
  1. GYNO-DAKTARIN [Suspect]
     Route: 064
  2. GYNO-DAKTARIN [Suspect]
     Indication: DRUG EXPOSURE DURING PREGNANCY
     Route: 064

REACTIONS (3)
  - FOETAL DISTRESS SYNDROME [None]
  - HYPOXIC-ISCHAEMIC ENCEPHALOPATHY [None]
  - WEBER-CHRISTIAN DISEASE [None]
